FAERS Safety Report 22811632 (Version 7)
Quarter: 2024Q2

REPORT INFORMATION
  Report Type: Spontaneous
  Country: CA (occurrence: CA)
  Receive Date: 20230810
  Receipt Date: 20240516
  Transmission Date: 20240715
  Serious: Yes (Other)
  Sender: FDA-Public Use
  Company Number: CA-CELLTRION INC.-2023CA015884

PATIENT

DRUGS (22)
  1. INFLECTRA [Suspect]
     Active Substance: INFLIXIMAB-DYYB
     Indication: Crohn^s disease
     Dosage: 5 MG/KG (W 0, 2, 6 WEEKS THEN EVERY 8 WEEKS)
     Route: 042
     Dates: start: 20230720
  2. INFLECTRA [Suspect]
     Active Substance: INFLIXIMAB-DYYB
     Dosage: 435 MG, AFTER 2 WEEKS (2 WEEK INDUCTION)
     Route: 042
     Dates: start: 20230803
  3. INFLECTRA [Suspect]
     Active Substance: INFLIXIMAB-DYYB
     Dosage: 445 MG (5 MG/KG), WEEK 6
     Route: 042
     Dates: start: 20230828
  4. INFLECTRA [Suspect]
     Active Substance: INFLIXIMAB-DYYB
     Dosage: 450 MG (5 MG/KG) AFTER 12 WEEKS AND 3 DAY, EVERY 8 WEEKS
     Route: 042
     Dates: start: 20231123
  5. INFLECTRA [Suspect]
     Active Substance: INFLIXIMAB-DYYB
     Dosage: 445MG (5 MG/KG) EVERY 8 WEEKS, THEN EVERY 8 WEEKS
     Route: 042
     Dates: start: 20240118
  6. INFLECTRA [Suspect]
     Active Substance: INFLIXIMAB-DYYB
     Dosage: 445MG (5 MG/KG) EVERY 8 WEEKS, THEN EVERY 8 WEEKS
     Route: 042
     Dates: start: 20240118
  7. INFLECTRA [Suspect]
     Active Substance: INFLIXIMAB-DYYB
     Dosage: 5 MG/KG (W 0, 2, 6 WEEKS THEN EVERY 8 WEEKS) (440 MG 8 WEEKS)
     Route: 042
     Dates: start: 20240314
  8. INFLECTRA [Suspect]
     Active Substance: INFLIXIMAB-DYYB
     Dosage: 5 MG/KG (W 0, 2, 6 WEEKS THEN EVERY 8 WEEKS) (440 MG 8 WEEKS)
     Route: 042
     Dates: start: 20240314
  9. INFLECTRA [Suspect]
     Active Substance: INFLIXIMAB-DYYB
     Dosage: 5 MG/KG (W 0, 2, 6 WEEKS THEN EVERY 8 WEEKS) (420 MG, AFTER 8 WEEKS)
     Route: 042
     Dates: start: 20240507
  10. CHOLESTYRAMINE [Concomitant]
     Active Substance: CHOLESTYRAMINE
     Dosage: UNK (4 GM)
  11. CRESTOR [Concomitant]
     Active Substance: ROSUVASTATIN CALCIUM
     Dosage: UNK (40 MG)
  12. EFFEXOR [Concomitant]
     Active Substance: VENLAFAXINE HYDROCHLORIDE
     Dosage: UNK (150 MG)
  13. FOLIC ACID [Concomitant]
     Active Substance: FOLIC ACID
     Dosage: UNK (5 MG)
  14. IMODIUM [Concomitant]
     Active Substance: LOPERAMIDE HYDROCHLORIDE
     Dosage: UNK (2 MG)
  15. IMOVANE [Concomitant]
     Active Substance: ZOPICLONE
     Dosage: UNK (15 MG)
  16. BISOPROLOL FUMARATE [Concomitant]
     Active Substance: BISOPROLOL FUMARATE
     Dosage: UNK (5 MG)
  17. LEVOMEPROMAZINE MALEATE [Concomitant]
     Active Substance: LEVOMEPROMAZINE MALEATE
     Dosage: UNK (5 MG)
  18. METHOTREXATE [Concomitant]
     Active Substance: METHOTREXATE
     Dosage: 1 DF (2.5 MG), WEEKLY
     Route: 065
     Dates: start: 2021
  19. PANTOPRAZOLE SODIUM [Concomitant]
     Active Substance: PANTOPRAZOLE SODIUM
     Dosage: UNK (40 MG)
  20. PREDNISONE [Concomitant]
     Active Substance: PREDNISONE
     Dosage: UNK (5 MG)
  21. RESTORIL [Concomitant]
     Active Substance: TEMAZEPAM
     Dosage: UNK (30 MG)
  22. XARELTO [Concomitant]
     Active Substance: RIVAROXABAN
     Dosage: UNK (20 MG)

REACTIONS (9)
  - Condition aggravated [Not Recovered/Not Resolved]
  - Drug ineffective [Unknown]
  - Psoriasis [Unknown]
  - Arthralgia [Recovered/Resolved]
  - Inappropriate schedule of product administration [Unknown]
  - Nausea [Recovered/Resolved]
  - Gastroenteritis [Recovered/Resolved]
  - Diarrhoea [Recovered/Resolved]
  - Vomiting [Recovered/Resolved]

NARRATIVE: CASE EVENT DATE: 20230101
